FAERS Safety Report 4926938-4 (Version None)
Quarter: 2006Q1

REPORT INFORMATION
  Report Type: 
  Country: None (occurrence: None)
  Receive Date: 20060228
  Receipt Date: 20050914
  Transmission Date: 20060701
  Serious: No
  Sender: FDA-Public Use
  Company Number: US-GLAXOSMITHKLINE-A0574251A

PATIENT
  Age: 52 Year
  Sex: Female

DRUGS (4)
  1. LAMICTAL [Suspect]
     Indication: BIPOLAR DISORDER
     Dosage: 100MG TWICE PER DAY
     Route: 048
     Dates: start: 20050126, end: 20050909
  2. SONATA [Concomitant]
  3. SEROQUEL [Concomitant]
  4. AMBIEN [Concomitant]

REACTIONS (3)
  - ORAL MUCOSAL BLISTERING [None]
  - RASH [None]
  - SKIN LESION [None]
